FAERS Safety Report 5752240-7 (Version None)
Quarter: 2008Q2

REPORT INFORMATION
  Report Type: 
  Country: None (occurrence: None)
  Receive Date: 20080529
  Receipt Date: 20080522
  Transmission Date: 20081010
  Serious: Yes (Other)
  Sender: FDA-Public Use
  Company Number: US-JNJFOC-20080505091

PATIENT
  Age: 84 Year
  Sex: Female

DRUGS (12)
  1. RAZADYNE [Suspect]
     Indication: DEMENTIA ALZHEIMER'S TYPE
  2. NAMENDA [Suspect]
  3. NAMENDA [Suspect]
  4. NAMENDA [Suspect]
  5. NAMENDA [Suspect]
  6. NAMENDA [Suspect]
  7. NAMENDA [Suspect]
     Indication: DEMENTIA ALZHEIMER'S TYPE
  8. ARICEPT [Suspect]
     Indication: DEMENTIA ALZHEIMER'S TYPE
  9. MACRODANTIN [Concomitant]
  10. TOPROL-XL [Concomitant]
  11. TAZTIA [Concomitant]
  12. MIACALCIN [Concomitant]

REACTIONS (1)
  - CATATONIA [None]
